FAERS Safety Report 7816817-7 (Version None)
Quarter: 2011Q4

REPORT INFORMATION
  Report Type: 
  Country: None (occurrence: None)
  Receive Date: 20111017
  Receipt Date: 20111007
  Transmission Date: 20120403
  Serious: Yes (Hospitalization)
  Sender: FDA-Public Use
  Company Number: US-ASTELLAS-2011US006602

PATIENT

DRUGS (10)
  1. XALATAN [Concomitant]
     Indication: GLAUCOMA
     Dosage: 1 DROP EACH EYE, UID/QD
     Route: 047
     Dates: start: 20110501
  2. PROGRAF [Suspect]
     Indication: RENAL TRANSPLANT
     Dosage: 2 MG, BID
     Route: 048
     Dates: start: 20110618
  3. TAMSULOSIN HCL [Concomitant]
     Indication: PROSTATIC DISORDER
     Dosage: 48 MG, UID/QD
     Route: 048
     Dates: start: 20050101
  4. OMEPRAZOLE [Concomitant]
     Indication: GASTROOESOPHAGEAL REFLUX DISEASE
     Dosage: 40 MG, UID/QD
     Route: 048
     Dates: start: 20110618
  5. VALCYTE [Concomitant]
     Indication: VIRAL INFECTION
     Dosage: 450 MG, UID/QD
     Route: 048
     Dates: start: 20110618
  6. AMOXICILLIN [Concomitant]
     Indication: ANTIBIOTIC THERAPY
     Dosage: 500 MG, BID
     Route: 048
     Dates: start: 20111006
  7. MYFORTIC [Concomitant]
     Indication: RENAL TRANSPLANT
     Dosage: 540 MG, BID
     Route: 048
     Dates: start: 20110618
  8. SIMVASTATIN [Concomitant]
     Indication: BLOOD CHOLESTEROL
     Dosage: 20 MG, UID/QD
     Route: 048
     Dates: start: 20070101
  9. NORVASC [Concomitant]
     Indication: BLOOD GLUCOSE ABNORMAL
     Dosage: 10 MG, UID/QD
     Route: 048
     Dates: start: 20050101
  10. ACTOS [Concomitant]
     Indication: BLOOD GLUCOSE ABNORMAL
     Dosage: 45 MG, UID/QD
     Route: 048
     Dates: start: 20050101

REACTIONS (5)
  - HYDRONEPHROSIS [None]
  - URINARY TRACT INFECTION [None]
  - HOSPITALISATION [None]
  - ESCHERICHIA INFECTION [None]
  - URETHRAL STENOSIS [None]
